FAERS Safety Report 7605901-9 (Version None)
Quarter: 2011Q3

REPORT INFORMATION
  Report Type: 
  Country: None (occurrence: None)
  Receive Date: 20110713
  Receipt Date: 20110704
  Transmission Date: 20111222
  Serious: Yes (Other)
  Sender: FDA-Public Use
  Company Number: JP-AMGEN-KDC414007

PATIENT
  Age: 51 Year
  Sex: Female

DRUGS (6)
  1. TRIAMCINOLONE ACETONIDE [Concomitant]
     Dosage: UNK UNK, PRN
     Dates: start: 20070608, end: 20100217
  2. DENOSUMAB [Suspect]
     Indication: METASTASES TO BONE
     Dosage: UNK UNK, UNK
     Dates: start: 20090701
  3. CAPECITABINE [Concomitant]
     Dosage: UNK UNK, UNK
     Dates: start: 20090508
  4. ISODINE GARGLE [Concomitant]
     Dosage: UNK UNK, PRN
     Dates: start: 20071019
  5. VOLTAREN [Concomitant]
     Dosage: 37.5 MG, PRN
     Dates: start: 20090527
  6. LOXOPROFEN SODIUM [Concomitant]
     Dosage: UNK UNK, PRN
     Dates: start: 20090107, end: 20100922

REACTIONS (1)
  - PAIN IN JAW [None]
